FAERS Safety Report 20114701 (Version 3)
Quarter: 2021Q4

REPORT INFORMATION
  Report Type: Spontaneous
  Country: US (occurrence: US)
  Receive Date: 20211125
  Receipt Date: 20211207
  Transmission Date: 20220303
  Serious: No
  Sender: FDA-Public Use
  Company Number: US-SANOFI-00855618

PATIENT
  Sex: Female

DRUGS (4)
  1. DUPIXENT [Suspect]
     Active Substance: DUPILUMAB
     Indication: Dermatitis atopic
     Dosage: UNK
  2. TERBINAFINE [Concomitant]
     Active Substance: TERBINAFINE
  3. FLUCONAZOLE [Concomitant]
     Active Substance: FLUCONAZOLE
  4. TACS [Concomitant]

REACTIONS (5)
  - Dermatitis [Recovered/Resolved]
  - Burning sensation [Not Recovered/Not Resolved]
  - Pain [Not Recovered/Not Resolved]
  - Granuloma annulare [Unknown]
  - Therapy non-responder [Unknown]
